FAERS Safety Report 7974834-0 (Version None)
Quarter: 2011Q4

REPORT INFORMATION
  Report Type: 
  Country: None (occurrence: None)
  Receive Date: 20111213
  Receipt Date: 20111205
  Transmission Date: 20120403
  Serious: Yes (Other)
  Sender: FDA-Public Use
  Company Number: US-US-EMD SERONO, INC.-7053349

PATIENT
  Sex: Female

DRUGS (11)
  1. BACLOFEN [Concomitant]
  2. VITAMIN TAB [Concomitant]
  3. REBIF [Suspect]
     Indication: MULTIPLE SCLEROSIS
     Route: 058
     Dates: start: 20100426
  4. PROVIGIL [Concomitant]
  5. CITALOPRAM [Concomitant]
  6. METFORMIN HCL [Concomitant]
     Indication: DIABETES MELLITUS
  7. OMNARIS [Concomitant]
  8. HYDROCHLOROTHIAZIDE [Concomitant]
  9. CLONAZEPAM [Concomitant]
     Dosage: BEDTIME
  10. LANTUS [Concomitant]
     Indication: DIABETES MELLITUS
  11. SIMVASTATIN [Concomitant]

REACTIONS (10)
  - DYSPHAGIA [None]
  - HEADACHE [None]
  - DRY THROAT [None]
  - TREMOR [None]
  - COUGH [None]
  - PAIN [None]
  - BALANCE DISORDER [None]
  - THROAT IRRITATION [None]
  - INJECTION SITE ERYTHEMA [None]
  - DEPRESSION [None]
